FAERS Safety Report 18479193 (Version 2)
Quarter: 2020Q4

REPORT INFORMATION
  Report Type: Report from Study
  Country: CO (occurrence: CO)
  Receive Date: 20201109
  Receipt Date: 20201117
  Transmission Date: 20210114
  Serious: Yes (Death, Hospitalization)
  Sender: FDA-Public Use
  Company Number: NVSC2020CO299255

PATIENT
  Age: 80 Year
  Sex: Male

DRUGS (4)
  1. VITAMIN B COMPLEX [Concomitant]
     Active Substance: CYANOCOBALAMIN\DEXPANTHENOL\NIACINAMIDE\PYRIDOXINE HYDROCHLORIDE\RIBOFLAVIN 5^-PHOSPHATE SODIUM\THIAMINE HYDROCHLORIDE\VITAMIN B COMPLEX
     Indication: PRODUCT USED FOR UNKNOWN INDICATION
     Dosage: UNK (APPROXIMATELY 3 YEARS AGO, DAILY)
     Route: 048
  2. REVOLADE [Suspect]
     Active Substance: ELTROMBOPAG
     Indication: APLASTIC ANAEMIA
     Dosage: 25 MG, QD (24 HOURS)
     Route: 048
     Dates: start: 2018, end: 202001
  3. CALCIUM CARBONATE. [Concomitant]
     Active Substance: CALCIUM CARBONATE
     Indication: PRODUCT USED FOR UNKNOWN INDICATION
     Dosage: 60 MG, QD (APPROXIMATELY 3 YEARS AGO)
     Route: 048
  4. ANTINOL [Concomitant]
     Indication: PRODUCT USED FOR UNKNOWN INDICATION
     Dosage: 50 MG, QD (APPROXIMATELY 3 YEARS AGO)
     Route: 048

REACTIONS (5)
  - Product supply issue [Unknown]
  - Thrombosis [Unknown]
  - Headache [Unknown]
  - Renal failure [Fatal]
  - Product dose omission issue [Unknown]

NARRATIVE: CASE EVENT DATE: 20201012
